FAERS Safety Report 11588149 (Version 1)
Quarter: 2015Q4

REPORT INFORMATION
  Report Type: Spontaneous
  Country: JP (occurrence: JP)
  Receive Date: 20151002
  Receipt Date: 20151002
  Transmission Date: 20160304
  Serious: Yes (Life-Threatening, Other)
  Sender: FDA-Public Use
  Company Number: JP-ROCHE-1569599

PATIENT
  Age: 64 Year
  Sex: Male
  Weight: 58 kg

DRUGS (11)
  1. TS-1 [Concomitant]
     Active Substance: GIMERACIL\OTERACIL\TEGAFUR
     Indication: GASTRIC CANCER
     Dosage: DOSAGE IS UNCERTAIN.
     Route: 048
     Dates: start: 20140114, end: 201404
  2. HERCEPTIN [Suspect]
     Active Substance: TRASTUZUMAB
     Indication: GASTRIC CANCER
     Route: 041
     Dates: start: 20140210, end: 20140210
  3. HERCEPTIN [Suspect]
     Active Substance: TRASTUZUMAB
     Indication: GASTRIC CANCER
     Route: 041
     Dates: start: 20140325, end: 20140325
  4. TS-1 [Concomitant]
     Active Substance: GIMERACIL\OTERACIL\TEGAFUR
     Dosage: DOSAGE IS UNCERTAIN.
     Route: 048
     Dates: start: 2014, end: 20140728
  5. HERCEPTIN [Suspect]
     Active Substance: TRASTUZUMAB
     Indication: GASTRIC CANCER
     Route: 041
     Dates: start: 20140304, end: 20140304
  6. HERCEPTIN [Suspect]
     Active Substance: TRASTUZUMAB
     Indication: GASTRIC CANCER
     Route: 041
     Dates: start: 20140430, end: 20140430
  7. HERCEPTIN [Suspect]
     Active Substance: TRASTUZUMAB
     Indication: GASTRIC CANCER
     Route: 041
     Dates: start: 20140624, end: 20140624
  8. NEUZYM [Concomitant]
     Active Substance: LYSOZYME HYDROCHLORIDE
     Route: 048
     Dates: start: 20140212, end: 20140302
  9. HERCEPTIN [Suspect]
     Active Substance: TRASTUZUMAB
     Indication: GASTRIC CANCER
     Route: 041
     Dates: start: 20140715, end: 20140715
  10. HERCEPTIN [Suspect]
     Active Substance: TRASTUZUMAB
     Indication: GASTRIC CANCER
     Dosage: DOSAGE IS UNCERTAIN.
     Route: 041
     Dates: start: 20140603, end: 20140603
  11. KRESTIN [Concomitant]
     Active Substance: POLYSACCHARIDES
     Indication: GASTRIC CANCER
     Route: 065
     Dates: start: 20140603

REACTIONS (4)
  - Bone marrow failure [Unknown]
  - Cardiac failure congestive [Not Recovered/Not Resolved]
  - Cardiac failure [Unknown]
  - Dyspnoea exertional [Unknown]

NARRATIVE: CASE EVENT DATE: 20140603
